FAERS Safety Report 12750302 (Version 4)
Quarter: 2017Q2

REPORT INFORMATION
  Report Type: Spontaneous
  Country: US (occurrence: US)
  Receive Date: 20160916
  Receipt Date: 20170627
  Transmission Date: 20170830
  Serious: Yes (Other)
  Sender: FDA-Public Use
  Company Number: US-PFIZER INC-2016387613

PATIENT
  Age: 53 Year
  Sex: Female
  Weight: 95.24 kg

DRUGS (7)
  1. XGEVA [Concomitant]
     Active Substance: DENOSUMAB
     Dosage: UNK
  2. IBRANCE [Suspect]
     Active Substance: PALBOCICLIB
     Indication: BREAST CANCER METASTATIC
     Dosage: 100 MG, CYCLIC (DAYS 1-21, Q28 DAYS)
     Route: 048
     Dates: start: 20160701
  3. IBRANCE [Suspect]
     Active Substance: PALBOCICLIB
     Dosage: 75 MG, CYCLIC (DAYS 1-21 Q28 DAYS)
     Route: 048
     Dates: start: 201607
  4. NORVASC [Concomitant]
     Active Substance: AMLODIPINE BESYLATE
     Dosage: 10 MG, 1X/DAY (NIGHTLY)
     Route: 048
  5. FEMARA [Concomitant]
     Active Substance: LETROZOLE
     Dosage: 2.5 MG, 1X/DAY
     Route: 048
     Dates: start: 20170522
  6. ALEVE [Concomitant]
     Active Substance: NAPROXEN SODIUM
     Indication: PAIN
     Dosage: 220 MG, AS NEEDED
     Route: 048
  7. MEVACOR [Concomitant]
     Active Substance: LOVASTATIN
     Dosage: 10 MG, 1X/DAY
     Route: 048

REACTIONS (20)
  - Appetite disorder [Unknown]
  - Decreased appetite [Unknown]
  - Dysgeusia [Unknown]
  - Back pain [Unknown]
  - Oedema peripheral [Unknown]
  - Nervousness [Unknown]
  - Paraesthesia [Unknown]
  - Abdominal pain upper [Not Recovered/Not Resolved]
  - Hot flush [Unknown]
  - Confusional state [Unknown]
  - Night sweats [Unknown]
  - Neck pain [Unknown]
  - Malaise [Unknown]
  - Pelvic pain [Unknown]
  - Muscle spasms [Unknown]
  - Abdominal distension [Unknown]
  - Fatigue [Unknown]
  - Musculoskeletal stiffness [Unknown]
  - White blood cell disorder [Unknown]
  - Dyspnoea exertional [Unknown]
